FAERS Safety Report 8833048 (Version 1)
Quarter: 2012Q4

REPORT INFORMATION
  Report Type: Spontaneous
  Country: US (occurrence: None)
  Receive Date: 20121009
  Receipt Date: 20121009
  Transmission Date: 20130627
  Serious: Yes (Hospitalization)
  Sender: FDA-Public Use
  Company Number: None

PATIENT
  Age: 67 Year
  Sex: Female
  Weight: 83.9 kg

DRUGS (2)
  1. GEMCITABINE [Suspect]
     Dosage: 1000mg/m2, d1, 8, 15 of 28
     Dates: start: 20120710, end: 20120723
  2. TARCEVA [Suspect]
     Dosage: 150 mg D2-5, 9-12, 16-26
     Dates: start: 20120709

REACTIONS (4)
  - Asthenia [None]
  - Oedema peripheral [None]
  - Cellulitis [None]
  - Abdominal pain [None]
